FAERS Safety Report 8209420-0 (Version None)
Quarter: 2012Q1

REPORT INFORMATION
  Report Type: 
  Country: None (occurrence: None)
  Receive Date: 20120314
  Receipt Date: 20120307
  Transmission Date: 20120608
  Serious: Yes (Other)
  Sender: FDA-Public Use
  Company Number: BR-PFIZER INC-2012035920

PATIENT
  Sex: Female

DRUGS (4)
  1. ALPRAZOLAM [Suspect]
     Indication: NERVOUSNESS
  2. ALPRAZOLAM [Suspect]
     Indication: HYPERTENSION
     Dosage: 0.25 MG OR 0.5 MG DAILY
     Route: 048
  3. ALPRAZOLAM [Suspect]
     Dosage: UNK
     Route: 048
     Dates: start: 20120101, end: 20120101
  4. DIOVAN [Concomitant]
     Indication: HYPERTENSION
     Dosage: UNK

REACTIONS (5)
  - NERVOUSNESS [None]
  - CIRCUMSTANCE OR INFORMATION CAPABLE OF LEADING TO MEDICATION ERROR [None]
  - PANIC DISORDER [None]
  - BLOOD PRESSURE INCREASED [None]
  - DRUG INEFFECTIVE [None]
